FAERS Safety Report 8522796-X (Version None)
Quarter: 2012Q3

REPORT INFORMATION
  Report Type: 
  Country: None (occurrence: None)
  Receive Date: 20120719
  Receipt Date: 20120716
  Transmission Date: 20120928
  Serious: Yes (Other)
  Sender: FDA-Public Use
  Company Number: CHPA2012US015025

PATIENT
  Age: 82 Year
  Sex: Male

DRUGS (2)
  1. PREVACID 24 HR [Suspect]
     Indication: ABDOMINAL DISCOMFORT
     Dosage: 15MG OR 30MG AS NEEDED
     Route: 048
     Dates: start: 20120101, end: 20120713
  2. ANTIHYPERTENSIVES [Concomitant]
     Indication: HYPERTENSION

REACTIONS (7)
  - OVERDOSE [None]
  - WRONG TECHNIQUE IN DRUG USAGE PROCESS [None]
  - HYPERTENSION [None]
  - OFF LABEL USE [None]
  - TREATMENT NONCOMPLIANCE [None]
  - PRURITUS [None]
  - FEELING HOT [None]
